FAERS Safety Report 9013767 (Version 1)
Quarter: 2012Q4

REPORT INFORMATION
  Report Type: Spontaneous
  Country: GB (occurrence: None)
  Receive Date: 20121231
  Receipt Date: 20121231
  Transmission Date: 20130627
  Serious: Yes (Hospitalization)
  Sender: FDA-Public Use
  Company Number: 2012326150

PATIENT
  Age: 63 Year
  Sex: Male

DRUGS (25)
  1. DALTEPARIN SODIUM (DALTEPARIN SODIUM) UNKNOWN [Suspect]
     Indication: THROMBOEMBOLISM PROPHYLAXIS
     Route: 058
     Dates: start: 20121207
  2. CLOPIDOGREL SULFATE (CLOPIDOGREL SULFATE) FILM-COATED TABLET [Suspect]
     Dosage: In morning, Oral
     Route: 048
     Dates: end: 20121207
  3. AMITRIPTYLINE (AMITRIPTYLINE) [Concomitant]
  4. ATORVASTATIN (ATORVASTATIN) [Concomitant]
  5. CIPROFLOXACIN (CIPROFLOXACIN) [Concomitant]
  6. CLINDAMYCIN (CLINDAMYCIN) [Concomitant]
  7. CODEINE (CODEINE) [Concomitant]
  8. TILDIEM (DILTIAZEM HYDROCHLORIDE) [Concomitant]
  9. FUROSEMIDE (FUROSEMIDE) [Concomitant]
  10. LACTULOSE (LACTULOSE) [Concomitant]
  11. LANSOPRAZOLE (LANSOPRAZOLE) [Concomitant]
  12. METFORMIN (METFORMIN) [Concomitant]
  13. NOVOMIX (INSULIN ASPART) [Concomitant]
  14. MULTIVITAMINS (ASCORBIC ACID, ERGOCALCIFEROL, FOLIC ACID, NICOTINAMIDE, PANTHENOL, RETINOL, RIBOFLAVIN, THIAMINE HYDROCHLORIDE) [Concomitant]
  15. PARACETAMOL (PARACETAMOL) [Concomitant]
  16. PERINDOPRIL (PERINDOPRIL) [Concomitant]
  17. TAMSULOSIN (TAMSULOSIN) [Concomitant]
  18. THIAMINE (THIAMINE) [Concomitant]
  19. TIOTROPIUM (TIOTROPIUM) [Concomitant]
  20. TRAMADOL (TRAMADOL) [Concomitant]
  21. MORPHINE (MORPHINE) [Concomitant]
  22. MEROPENEM (MEROPENEM) [Concomitant]
  23. TEICOPLANIN (TEICOPLANIN) [Concomitant]
  24. GENTAMICIN (GENTAMICIN) [Concomitant]
  25. VITAMIN B COMPLEX (CALCIUM PANTOTHENATE, NICOTINAMIDE, PYRIDOXINE HYDROCHLORIDE, RIBOFLAVIN, THIAMINE HYDROCHLORIDE) [Concomitant]

REACTIONS (2)
  - Haematemesis [None]
  - Infrequent bowel movements [None]
